FAERS Safety Report 18077230 (Version 1)
Quarter: 2020Q3

REPORT INFORMATION
  Report Type: Spontaneous
  Country: JP (occurrence: JP)
  Receive Date: 20200727
  Receipt Date: 20200727
  Transmission Date: 20201103
  Serious: Yes (Other)
  Sender: FDA-Public Use
  Company Number: JP-PFIZER INC-2020079723

PATIENT
  Age: 69 Year
  Sex: Female

DRUGS (1)
  1. CELECOX [Suspect]
     Active Substance: CELECOXIB
     Dosage: UNK
     Dates: start: 201805, end: 201805

REACTIONS (2)
  - Interstitial lung disease [Unknown]
  - Tubulointerstitial nephritis [Unknown]
